FAERS Safety Report 9096115 (Version 2)
Quarter: 2013Q1

REPORT INFORMATION
  Report Type: Report from Study
  Country: CA (occurrence: CA)
  Receive Date: 20130207
  Receipt Date: 20130215
  Transmission Date: 20140127
  Serious: Yes (Other)
  Sender: FDA-Public Use
  Company Number: CA-ROCHE-1188675

PATIENT
  Sex: Male
  Weight: 69.9 kg

DRUGS (9)
  1. RITUXAN [Suspect]
     Indication: RHEUMATOID ARTHRITIS
     Route: 042
     Dates: start: 20090812
  2. ELTROXIN [Concomitant]
  3. PREDNISONE [Concomitant]
  4. LOSEC (CANADA) [Concomitant]
  5. KETOPROFEN [Concomitant]
  6. ARAVA [Concomitant]
  7. DIPHENHYDRAMINE HCL [Concomitant]
     Indication: PREMEDICATION
     Route: 048
     Dates: start: 20090831
  8. ACETAMINOPHEN [Concomitant]
     Indication: PREMEDICATION
     Route: 048
     Dates: start: 20090831
  9. METHYLPREDNISOLONE [Concomitant]
     Route: 042
     Dates: start: 20090831

REACTIONS (1)
  - Emphysema [Unknown]
